FAERS Safety Report 15010554 (Version 1)
Quarter: 2018Q2

REPORT INFORMATION
  Report Type: Report from Study
  Country: CL (occurrence: CL)
  Receive Date: 20180614
  Receipt Date: 20180614
  Transmission Date: 20180711
  Serious: Yes (Hospitalization)
  Sender: FDA-Public Use
  Company Number: CL-SA-2018SA148299

PATIENT
  Age: 71 Year
  Sex: Female
  Weight: 74 kg

DRUGS (13)
  1. CELECOXIB. [Concomitant]
     Active Substance: CELECOXIB
     Indication: RHEUMATOID ARTHRITIS
     Dosage: 200 MG, QD
     Route: 048
     Dates: start: 201203
  2. HYDROXOCOBALAMIN [Concomitant]
     Active Substance: HYDROXOCOBALAMIN
     Indication: POLYNEUROPATHY
     Dosage: 1 MG, QD
     Route: 048
     Dates: start: 20170911
  3. GABAPENTIN. [Concomitant]
     Active Substance: GABAPENTIN
     Indication: POLYNEUROPATHY
     Dosage: 300 MG, QD
     Route: 048
     Dates: start: 20170911
  4. BLINDED NO STUDY DRUG GIVEN [Suspect]
     Active Substance: INVESTIGATIONAL PRODUCT
     Indication: RHEUMATOID ARTHRITIS
     Dosage: UNK UNK, QOW
     Route: 058
  5. BLINDED SARILUMAB [Suspect]
     Active Substance: SARILUMAB
     Indication: RHEUMATOID ARTHRITIS
     Dosage: UNK UNK, QOW
     Route: 058
  6. BLINDED SARILUMAB [Suspect]
     Active Substance: SARILUMAB
     Indication: RHEUMATOID ARTHRITIS
     Dosage: UNK UNK, QOW
     Route: 058
  7. LOSARTAN. [Concomitant]
     Active Substance: LOSARTAN
     Indication: HYPERTENSION
     Dosage: 100 MG, BID
     Route: 048
     Dates: start: 20161121
  8. HYDROCHLOROTHIAZIDE. [Concomitant]
     Active Substance: HYDROCHLOROTHIAZIDE
     Indication: HYPERTENSION
     Dosage: 12.5 MG, QD
     Route: 048
     Dates: start: 2005
  9. PHENYLEPHRINE HYDROCHLORIDE. [Concomitant]
     Active Substance: PHENYLEPHRINE HYDROCHLORIDE
     Indication: KERATITIS
     Dosage: 6 GTT DROPS, QID
     Route: 047
     Dates: start: 20170505
  10. PREDNISONE. [Concomitant]
     Active Substance: PREDNISONE
     Indication: RHEUMATOID ARTHRITIS
     Dosage: 5 MG, QD
     Route: 048
     Dates: start: 20180210
  11. BLINDED ADALIMUMAB [Suspect]
     Active Substance: ADALIMUMAB
     Indication: RHEUMATOID ARTHRITIS
     Dosage: UNK UNK, QOW
     Route: 058
  12. BLINDED PLACEBO [Suspect]
     Active Substance: INVESTIGATIONAL PRODUCT
     Indication: RHEUMATOID ARTHRITIS
     Dosage: UNK UNK, QOW
     Route: 058
  13. LEVOTHYROXINE. [Concomitant]
     Active Substance: LEVOTHYROXINE
     Indication: HYPOTHYROIDISM
     Dosage: 100 UG, QD
     Route: 048
     Dates: start: 1995

REACTIONS (1)
  - Pulmonary haemorrhage [Recovering/Resolving]

NARRATIVE: CASE EVENT DATE: 20180529
